FAERS Safety Report 21758818 (Version 10)
Quarter: 2023Q2

REPORT INFORMATION
  Report Type: Report from Study
  Country: US (occurrence: US)
  Receive Date: 20221221
  Receipt Date: 20230523
  Transmission Date: 20230721
  Serious: Yes (Hospitalization, Other)
  Sender: FDA-Public Use
  Company Number: US-INSMED, INC.-2022-03472-US

PATIENT
  Age: 82 Year
  Sex: Female

DRUGS (4)
  1. ARIKAYCE [Suspect]
     Active Substance: AMIKACIN
     Indication: Mycobacterium avium complex infection
     Dosage: 590 MILLIGRAM, QD
     Route: 055
     Dates: start: 20221201, end: 202212
  2. ARIKAYCE [Suspect]
     Active Substance: AMIKACIN
     Dosage: 590 MILLIGRAM, QOD
     Route: 055
     Dates: start: 202212, end: 20221214
  3. ARIKAYCE [Suspect]
     Active Substance: AMIKACIN
     Dosage: 590 MILLIGRAM, QD
     Route: 055
     Dates: end: 202302
  4. ARIKAYCE [Suspect]
     Active Substance: AMIKACIN
     Dosage: 590 MILLIGRAM, QD
     Route: 055
     Dates: start: 202302, end: 20230411

REACTIONS (24)
  - Stomatitis [Recovering/Resolving]
  - Dysphagia [Not Recovered/Not Resolved]
  - Oxygen saturation decreased [Unknown]
  - Pneumonia [Recovered/Resolved]
  - Dysphonia [Recovering/Resolving]
  - Drug hypersensitivity [Not Recovered/Not Resolved]
  - Swollen tongue [Recovering/Resolving]
  - Drug intolerance [Not Recovered/Not Resolved]
  - Glossodynia [Recovering/Resolving]
  - Bedridden [Recovered/Resolved]
  - Pharyngeal swelling [Recovering/Resolving]
  - Sputum increased [Not Recovered/Not Resolved]
  - Throat irritation [Not Recovered/Not Resolved]
  - Oral fungal infection [Recovering/Resolving]
  - Vomiting [Not Recovered/Not Resolved]
  - Retching [Unknown]
  - Cough [Not Recovered/Not Resolved]
  - Malaise [Recovering/Resolving]
  - Oropharyngeal pain [Recovering/Resolving]
  - Diarrhoea [Not Recovered/Not Resolved]
  - Fatigue [Recovering/Resolving]
  - Nausea [Recovering/Resolving]
  - Unevaluable event [Unknown]
  - Product dose omission issue [Unknown]

NARRATIVE: CASE EVENT DATE: 20221201
